FAERS Safety Report 8756408 (Version 3)
Quarter: 2013Q3

REPORT INFORMATION
  Report Type: Report from Study
  Country: JP (occurrence: JP)
  Receive Date: 20120828
  Receipt Date: 20130822
  Transmission Date: 20140515
  Serious: Yes (Hospitalization)
  Sender: FDA-Public Use
  Company Number: JP-009507513-1103USA01264

PATIENT
  Age: 35 Year
  Sex: Male

DRUGS (15)
  1. ISENTRESS TABLETS 400MG [Suspect]
     Indication: HIV INFECTION
     Dosage: 800 MG, QD
     Route: 048
     Dates: start: 20091229
  2. INTELENCE [Suspect]
     Indication: HIV INFECTION
     Dosage: 400 MG, QD
     Route: 048
     Dates: start: 20091229
  3. EPZICOM [Suspect]
     Indication: HIV INFECTION
     Dosage: 1 DF, QD
     Route: 048
     Dates: start: 20091229
  4. EPIVIR [Suspect]
     Indication: HIV INFECTION
     Dosage: 150 MG, BID
     Route: 048
     Dates: start: 19990112, end: 20091228
  5. KALETRA [Suspect]
     Indication: HIV INFECTION
     Dosage: 6 DF, QD
     Route: 048
     Dates: end: 20061031
  6. KALETRA [Suspect]
     Dosage: 4 DF, QD
     Route: 048
     Dates: start: 20061101, end: 20091228
  7. VIREAD [Suspect]
     Indication: HIV INFECTION
     Dosage: 300 MG, QD
     Route: 048
     Dates: end: 20091228
  8. ZERIT [Concomitant]
     Indication: HIV INFECTION
     Dosage: 30 MG, BID
     Route: 048
     Dates: start: 19990112, end: 20041117
  9. VIRACEPT [Concomitant]
     Indication: HIV INFECTION
     Dosage: 750 MG, TID
     Route: 048
     Dates: start: 19990112, end: 20050112
  10. URSO [Concomitant]
     Indication: LIVER DISORDER
     Dosage: 600 MG, TID
     Route: 048
  11. URSO [Concomitant]
     Dosage: 200 MG, TID
     Route: 048
     Dates: start: 20111221
  12. URSO [Concomitant]
     Dosage: 200 MG, TID
     Route: 048
     Dates: end: 20110930
  13. FACTOR VIII [Concomitant]
     Indication: FACTOR VIII DEFICIENCY
     Dosage: A VARIETY OF 1000 UT X TIMES/MONTH
     Route: 042
     Dates: end: 20111220
  14. FACTOR VIII [Concomitant]
     Dosage: A VARIETY OF 1000 UT X TIMES/MONTH
     Route: 042
     Dates: start: 20120224
  15. PEGINTERFERON ALFA-2A [Concomitant]
     Indication: HEPATITIS
     Dosage: 36 MICROGRAM, Q2W
     Route: 058
     Dates: end: 20120528

REACTIONS (2)
  - Haemorrhagic diathesis [Recovered/Resolved]
  - Liver disorder [Not Recovered/Not Resolved]
